FAERS Safety Report 5643390-4 (Version None)
Quarter: 2008Q1

REPORT INFORMATION
  Report Type: 
  Country: None (occurrence: None)
  Receive Date: 20080228
  Receipt Date: 20080225
  Transmission Date: 20080703
  Serious: Yes (Hospitalization)
  Sender: FDA-Public Use
  Company Number: FR-ASTRAZENECA-2008CG00314

PATIENT
  Age: 35069 Day
  Sex: Female

DRUGS (8)
  1. ATACAND [Suspect]
     Indication: HYPERTENSION
     Route: 048
     Dates: start: 20020101, end: 20071206
  2. EFFEXOR [Suspect]
     Indication: DEPRESSION
     Route: 048
     Dates: start: 20040101, end: 20071120
  3. EFFEXOR [Suspect]
     Route: 048
     Dates: start: 20071121, end: 20071206
  4. REMINYL [Suspect]
     Indication: DEMENTIA ALZHEIMER'S TYPE
     Route: 048
     Dates: start: 20020101, end: 20071206
  5. CELECTOL [Concomitant]
     Indication: HYPERTENSION
     Route: 048
     Dates: start: 20020101
  6. MACROGOL [Concomitant]
     Route: 048
     Dates: start: 20020101
  7. KARDEGIC [Concomitant]
     Route: 048
     Dates: start: 20020101, end: 20071206
  8. FEROGRAD 500 [Concomitant]
     Indication: IRON DEFICIENCY
     Route: 048

REACTIONS (2)
  - CONFUSIONAL STATE [None]
  - HYPONATRAEMIA [None]
